FAERS Safety Report 8056430-2 (Version None)
Quarter: 2012Q1

REPORT INFORMATION
  Report Type: 
  Country: None (occurrence: None)
  Receive Date: 20120119
  Receipt Date: 20120117
  Transmission Date: 20120608
  Serious: Yes (Disabling, Other)
  Sender: FDA-Public Use
  Company Number: US-MERCK-1106USA00494

PATIENT
  Age: 51 Year
  Sex: Male
  Weight: 84 kg

DRUGS (7)
  1. PREDNISONE [Concomitant]
     Indication: RHEUMATOID ARTHRITIS
     Route: 065
     Dates: start: 20060101, end: 20100101
  2. ALENDRONATE SODIUM [Suspect]
     Indication: OSTEOPOROSIS
     Route: 048
     Dates: start: 20090402, end: 20101214
  3. ALENDRONATE SODIUM [Suspect]
     Indication: OSTEOPENIA
     Route: 048
     Dates: start: 20090402, end: 20101214
  4. FLEXERIL [Concomitant]
     Indication: BACK PAIN
     Route: 065
     Dates: start: 20060501
  5. FOSAMAX [Suspect]
     Indication: OSTEOPENIA
     Route: 048
     Dates: start: 20070101, end: 20090101
  6. VICODIN [Concomitant]
     Indication: BACK PAIN
     Route: 065
     Dates: start: 20050101
  7. FOSAMAX [Suspect]
     Indication: OSTEOPOROSIS
     Route: 048
     Dates: start: 20070101, end: 20090101

REACTIONS (40)
  - ARTHRALGIA [None]
  - CELLULITIS [None]
  - DEEP VEIN THROMBOSIS [None]
  - THROMBOSIS [None]
  - BACK PAIN [None]
  - DIABETES MELLITUS [None]
  - MUSCULOSKELETAL CHEST PAIN [None]
  - EXOSTOSIS [None]
  - PYREXIA [None]
  - OSTEONECROSIS OF JAW [None]
  - OSTEOMYELITIS [None]
  - URINARY RETENTION [None]
  - NEPHROLITHIASIS [None]
  - FRACTURED SACRUM [None]
  - DIZZINESS [None]
  - DRUG HYPERSENSITIVITY [None]
  - LYMPHADENOPATHY [None]
  - LUMBAR RADICULOPATHY [None]
  - GINGIVAL DISORDER [None]
  - JAW DISORDER [None]
  - ABSCESS ORAL [None]
  - SPONDYLOLISTHESIS [None]
  - RASH [None]
  - RIB FRACTURE [None]
  - NECK PAIN [None]
  - FALL [None]
  - INCREASED TENDENCY TO BRUISE [None]
  - INTERVERTEBRAL DISC PROTRUSION [None]
  - DENTAL CARIES [None]
  - DRY SKIN [None]
  - TEMPOROMANDIBULAR JOINT SYNDROME [None]
  - RENAL CYST [None]
  - OTITIS MEDIA ACUTE [None]
  - MALAISE [None]
  - IMMUNE SYSTEM DISORDER [None]
  - ADVERSE DRUG REACTION [None]
  - CATARACT [None]
  - TOBACCO ABUSE [None]
  - LEUKOCYTOSIS [None]
  - FISTULA DISCHARGE [None]
